FAERS Safety Report 8072750-X (Version None)
Quarter: 2012Q1

REPORT INFORMATION
  Report Type: 
  Country: None (occurrence: None)
  Receive Date: 20120126
  Receipt Date: 20120116
  Transmission Date: 20120608
  Serious: Yes (Other)
  Sender: FDA-Public Use
  Company Number: US-JNJFOC-20120106093

PATIENT
  Age: 49 Year
  Sex: Male

DRUGS (1)
  1. XARELTO [Suspect]
     Indication: ORTHOPEDIC PROCEDURE
     Route: 048

REACTIONS (1)
  - CHOLECYSTOSTOMY [None]
